FAERS Safety Report 21527155 (Version 1)
Quarter: 2022Q4

REPORT INFORMATION
  Report Type: Spontaneous
  Country: US (occurrence: US)
  Receive Date: 20221031
  Receipt Date: 20221031
  Transmission Date: 20230113
  Serious: Yes (Hospitalization, Other)
  Sender: FDA-Public Use
  Company Number: US-MLMSERVICE-20221018-3868106-1

PATIENT
  Age: 58 Year
  Sex: Male

DRUGS (1)
  1. OLANZAPINE [Suspect]
     Active Substance: OLANZAPINE
     Dosage: UNK
     Route: 065

REACTIONS (15)
  - Unresponsive to stimuli [Recovered/Resolved]
  - Facial paralysis [Recovered/Resolved]
  - Bladder dilatation [Unknown]
  - Oxygen saturation decreased [Recovered/Resolved]
  - Gastrointestinal sounds abnormal [Unknown]
  - Confusional state [Recovered/Resolved]
  - Drug level increased [Unknown]
  - Mucosal dryness [Unknown]
  - Toxicity to various agents [Unknown]
  - Overdose [Unknown]
  - Delirium [Recovered/Resolved]
  - Depressed level of consciousness [Recovered/Resolved]
  - Mydriasis [Recovered/Resolved]
  - Sinus tachycardia [Unknown]
  - Dry skin [Unknown]
